FAERS Safety Report 10234729 (Version 1)
Quarter: 2014Q2

REPORT INFORMATION
  Report Type: Spontaneous
  Country: US (occurrence: None)
  Receive Date: 20140506
  Receipt Date: 20140506
  Transmission Date: 20141212
  Serious: Yes (Other)
  Sender: FDA-Public Use
  Company Number: 1275699

PATIENT
  Sex: 0

DRUGS (2)
  1. BEVACIZUMAB (BEVACIZUMAB) [Suspect]
     Indication: PRODUCT USED FOR UNKNOWN INDICATION
     Dosage: INTRAVITREAL
  2. BEVACIZUMAB (BEVACIZUMAB) [Suspect]
     Indication: OFF LABEL USE
     Dosage: INTRAVITREAL

REACTIONS (1)
  - Eye inflammation [None]
